FAERS Safety Report 5156795-5 (Version None)
Quarter: 2006Q4

REPORT INFORMATION
  Report Type: 
  Country: None (occurrence: None)
  Receive Date: 20061115
  Receipt Date: 20061030
  Transmission Date: 20070319
  Serious: Yes (Other)
  Sender: FDA-Public Use
  Company Number: 2006002092

PATIENT
  Age: 46 Year
  Sex: Female
  Weight: 61.7 kg

DRUGS (5)
  1. ERLOTINIB (TABLET) [Suspect]
     Indication: SARCOMA
     Dosage: 150 MG (QD) ORAL
     Route: 048
     Dates: start: 20060914
  2. TIPIFARNIB (R115777) [Suspect]
     Dosage: 300 MG (BID) ORAL
     Route: 048
     Dates: start: 20060914, end: 20061003
  3. FENTANYL [Concomitant]
  4. GABAPENTIN [Concomitant]
  5. OXYCODONE HYDROCHLORIDE AND ACETAMINOPHEN [Concomitant]

REACTIONS (2)
  - FEBRILE NEUTROPENIA [None]
  - LEUKOPENIA [None]
